FAERS Safety Report 10031592 (Version 2)
Quarter: 2014Q2

REPORT INFORMATION
  Report Type: Spontaneous
  Country: US (occurrence: US)
  Receive Date: 20140324
  Receipt Date: 20140403
  Transmission Date: 20141212
  Serious: No
  Sender: FDA-Public Use
  Company Number: US-PFIZER INC-2014080239

PATIENT
  Age: 43 Year
  Sex: Female
  Weight: 65.76 kg

DRUGS (25)
  1. LYRICA [Suspect]
     Indication: FIBROMYALGIA
     Dosage: 150 MG, 2X/DAY
     Route: 048
  2. GABAPENTIN [Suspect]
     Indication: FIBROMYALGIA
     Dosage: 1200 MG, 3X/DAY
  3. PRILOSEC [Concomitant]
     Dosage: 1 DF, 1X/DAY (Q MORNINGS)
  4. PRILOSEC [Concomitant]
     Dosage: 12.5 MG, 1X/DAY
  5. BUPROPION SR [Concomitant]
     Dosage: 150 MG, 2X/DAY
  6. TRAZODONE [Concomitant]
     Dosage: 25 MG (1/2 50 MG TAB), QHS
  7. LITHIUM [Concomitant]
     Dosage: 300 MG, QHS
  8. CLONAZEPAM [Concomitant]
     Indication: ANXIETY DISORDER
     Dosage: 1 MG, 4X/DAY (1 TAB QID)
  9. ABILIFY [Concomitant]
     Dosage: 15 MG, QHS
  10. GABAPENTIN [Concomitant]
     Dosage: 1200 MG (2X600 MG TABS), 3X/DAY
  11. BUSPIRONE [Concomitant]
     Indication: ANXIETY DISORDER
     Dosage: 10 MG, 3X/DAY (1 TAB TID)
  12. PRAVASTATIN [Concomitant]
     Dosage: 40 MG, QHS
  13. ESTRADIOL [Concomitant]
     Dosage: 1 MG, 1 Q MORNINGS
  14. TIZANIDINE [Concomitant]
     Dosage: 4 MG, 4X/DAY ( 1 TAB QID)
  15. MELOXICAM [Concomitant]
     Dosage: 15 MG, Q MORNINGS
  16. CARBAMAZEPINE [Concomitant]
     Dosage: 300 MG (100MG X3TABS), QHS
  17. SAVELLA [Concomitant]
     Dosage: 50 MG, 2X/DAY (1 TAB BID)
  18. TRAMADOL [Concomitant]
     Indication: FIBROMYALGIA
     Dosage: 50 MG, QID AS NEEDED
  19. CENTRUM [Concomitant]
     Dosage: UNK
  20. CITRACAL [Concomitant]
     Dosage: UNK
  21. ALIGN [Concomitant]
     Dosage: UNK
  22. VITAMIN B12 [Concomitant]
     Dosage: UNK
  23. MIRALAX [Concomitant]
     Dosage: UNK
  24. VITAMIN D3 [Concomitant]
     Dosage: UNK
  25. WELLBUTRIN SR [Concomitant]
     Indication: BIPOLAR DISORDER
     Dosage: 150 MG, 3X/DAY

REACTIONS (1)
  - Fibromyalgia [Unknown]
